FAERS Safety Report 6107521-4 (Version None)
Quarter: 2009Q1

REPORT INFORMATION
  Report Type: 
  Country: None (occurrence: None)
  Receive Date: 20090302
  Receipt Date: 20080221
  Transmission Date: 20090719
  Serious: Yes (Hospitalization)
  Sender: FDA-Public Use
  Company Number: WAES 0802USA05197

PATIENT
  Age: 63 Year
  Sex: Female
  Weight: 68.0396 kg

DRUGS (9)
  1. PRINIVIL [Suspect]
     Indication: BLOOD PRESSURE
     Dosage: PO : 20 MG/DAILY/PO
     Route: 048
     Dates: start: 20040304, end: 20040405
  2. PRINIVIL [Suspect]
     Indication: BLOOD PRESSURE
     Dosage: PO : 20 MG/DAILY/PO
     Route: 048
     Dates: start: 20040406
  3. ALLEGRA D 24 HOUR [Concomitant]
  4. AMERGE [Concomitant]
  5. FLONASE [Concomitant]
  6. HYDRODIURIL [Concomitant]
  7. PREVACID [Concomitant]
  8. VIOXX [Concomitant]
  9. CALCIUM [Concomitant]

REACTIONS (1)
  - ANGIOEDEMA [None]
